FAERS Safety Report 8207859-0 (Version None)
Quarter: 2012Q1

REPORT INFORMATION
  Report Type: 
  Country: None (occurrence: None)
  Receive Date: 20120314
  Receipt Date: 20120307
  Transmission Date: 20120608
  Serious: Yes (Hospitalization, Other)
  Sender: FDA-Public Use
  Company Number: US-EISAI INC-E3810-05377-SPO-US

PATIENT
  Sex: Female
  Weight: 56 kg

DRUGS (3)
  1. ACIPHEX [Suspect]
     Indication: IRRITABLE BOWEL SYNDROME
     Route: 048
     Dates: start: 20111201, end: 20120301
  2. IBANDRONATE SODIUM [Suspect]
     Indication: OSTEOPOROSIS
     Route: 065
     Dates: start: 20090101, end: 20111201
  3. ACIPHEX [Suspect]
     Route: 048
     Dates: end: 20110201

REACTIONS (3)
  - RECTAL PROLAPSE [None]
  - OSTEOPOROSIS [None]
  - DIARRHOEA [None]
